FAERS Safety Report 10095304 (Version 2)
Quarter: 2014Q4

REPORT INFORMATION
  Report Type: Spontaneous
  Country: US (occurrence: None)
  Receive Date: 20140418
  Receipt Date: 20141030
  Transmission Date: 20150528
  Serious: Yes (Hospitalization, Other)
  Sender: FDA-Public Use
  Company Number: 2014-US-004257

PATIENT
  Age: 33 Year
  Sex: Female
  Weight: 72.6 kg

DRUGS (2)
  1. XYREM [Suspect]
     Active Substance: SODIUM OXYBATE
     Indication: SLEEP DISORDER
     Route: 048
     Dates: start: 200511
  2. THIAZIDE [Suspect]
     Active Substance: UNSPECIFIED INGREDIENT
     Indication: PRODUCT USED FOR UNKNOWN INDICATION

REACTIONS (7)
  - Insomnia [None]
  - Pregnancy [None]
  - Depression [None]
  - Maternal exposure during pregnancy [None]
  - Psychotic disorder [None]
  - Caesarean section [None]
  - Off label use [None]

NARRATIVE: CASE EVENT DATE: 20110908
